FAERS Safety Report 14586846 (Version 1)
Quarter: 2018Q1

REPORT INFORMATION
  Report Type: Spontaneous
  Country: US (occurrence: US)
  Receive Date: 20180228
  Receipt Date: 20180228
  Transmission Date: 20180509
  Serious: Yes (Hospitalization)
  Sender: FDA-Public Use
  Company Number: None

PATIENT
  Age: 18 Year
  Sex: Female

DRUGS (11)
  1. FLUOXETINE [Concomitant]
     Active Substance: FLUOXETINE HYDROCHLORIDE
  2. LEVOFLOXACIN. [Concomitant]
     Active Substance: LEVOFLOXACIN
  3. CLOTRIMAZOLE. [Concomitant]
     Active Substance: CLOTRIMAZOLE
  4. TOBI PODHALER [Suspect]
     Active Substance: TOBRAMYCIN
     Indication: CYSTIC FIBROSIS
     Dosage: ?          OTHER ROUTE:INHALATION?
     Route: 055
     Dates: start: 20170105
  5. DRONABINOL. [Concomitant]
     Active Substance: DRONABINOL
  6. MESALAMINE. [Concomitant]
     Active Substance: MESALAMINE
  7. MIRTAZAPINE. [Concomitant]
     Active Substance: MIRTAZAPINE
  8. VITAMIN D [Concomitant]
     Active Substance: CHOLECALCIFEROL
  9. MESALAMINE. [Concomitant]
     Active Substance: MESALAMINE
  10. LORATADINE. [Concomitant]
     Active Substance: LORATADINE
  11. FREESTYLE [Concomitant]

REACTIONS (2)
  - Dialysis [None]
  - Renal failure [None]
